FAERS Safety Report 5157730-6 (Version None)
Quarter: 2006Q4

REPORT INFORMATION
  Report Type: 
  Country: None (occurrence: None)
  Receive Date: 20061116
  Receipt Date: 20061102
  Transmission Date: 20070319
  Serious: No
  Sender: FDA-Public Use
  Company Number: 061106-0000962

PATIENT
  Age: 0 Year
  Sex: 0

DRUGS (2)
  1. NEOPROFEN [Suspect]
     Indication: PATENT DUCTUS ARTERIOSUS
     Dosage: 10 MG/KG; 1X; IV; SEE IMAGE
     Route: 042
     Dates: start: 20061029, end: 20061029
  2. NEOPROFEN [Suspect]
     Indication: PATENT DUCTUS ARTERIOSUS
     Dosage: 10 MG/KG; 1X; IV; SEE IMAGE
     Route: 042
     Dates: start: 20061030, end: 20061031

REACTIONS (1)
  - INTESTINAL PERFORATION [None]
